FAERS Safety Report 7372874-6 (Version None)
Quarter: 2011Q1

REPORT INFORMATION
  Report Type: 
  Country: None (occurrence: None)
  Receive Date: 20110314
  Receipt Date: 20110301
  Transmission Date: 20110831
  Serious: Yes (Other)
  Sender: FDA-Public Use
  Company Number: ACO_21972_2011

PATIENT
  Age: 60 Year
  Sex: Female

DRUGS (8)
  1. OXYBUTYNIN [Concomitant]
  2. EFFEXOR XR [Concomitant]
  3. NEURONTIN [Concomitant]
  4. BACLOFEN [Concomitant]
  5. ASPIRIN [Concomitant]
  6. TAMOXIFEN CITRATE [Concomitant]
  7. AMPYRA [Suspect]
     Indication: PRODUCT USED FOR UNKNOWN INDICATION
     Dosage: 10 MG, BID, ORAL
     Route: 048
     Dates: start: 20110101
  8. XANAX [Concomitant]

REACTIONS (1)
  - CARBOHYDRATE ANTIGEN 125 INCREASED [None]
